FAERS Safety Report 9765105 (Version 1)
Quarter: 2013Q4

REPORT INFORMATION
  Report Type: Spontaneous
  Country: US (occurrence: None)
  Receive Date: 20131216
  Receipt Date: 20131216
  Transmission Date: 20140711
  Serious: No
  Sender: FDA-Public Use
  Company Number: None

PATIENT
  Age: 27 Year
  Sex: Female
  Weight: 52.16 kg

DRUGS (1)
  1. DILANTIN [Suspect]
     Indication: CONVULSION
     Route: 048
     Dates: start: 20131125, end: 20131212

REACTIONS (10)
  - Headache [None]
  - Nausea [None]
  - Dizziness [None]
  - Insomnia [None]
  - Nervousness [None]
  - Dyspnoea [None]
  - Pyrexia [None]
  - Vision blurred [None]
  - Constipation [None]
  - Memory impairment [None]
